FAERS Safety Report 8900253 (Version 1)
Quarter: 2012Q4

REPORT INFORMATION
  Report Type: Report from Study
  Country: CA (occurrence: CA)
  Receive Date: 20121109
  Receipt Date: 20121109
  Transmission Date: 20130627
  Serious: Yes (Other)
  Sender: FDA-Public Use
  Company Number: CA-JNJFOC-20121001267

PATIENT
  Age: 39 None
  Sex: Female
  Weight: 72.3 kg

DRUGS (5)
  1. REMICADE [Suspect]
     Indication: CROHN^S DISEASE
     Route: 042
     Dates: start: 20121030
  2. REMICADE [Suspect]
     Indication: CROHN^S DISEASE
     Route: 042
     Dates: start: 2011
  3. IMURAN [Concomitant]
     Route: 065
  4. WELLBUTRIN [Concomitant]
     Route: 065
  5. EFFEXOR [Concomitant]
     Route: 065

REACTIONS (2)
  - Ankle operation [Recovered/Resolved]
  - Crohn^s disease [Unknown]
